FAERS Safety Report 9782840 (Version 1)
Quarter: 2013Q4

REPORT INFORMATION
  Report Type: Spontaneous
  Country: US (occurrence: US)
  Receive Date: 20131226
  Receipt Date: 20131226
  Transmission Date: 20140711
  Serious: No
  Sender: FDA-Public Use
  Company Number: US-ABBVIE-13P-163-1100986-00

PATIENT
  Age: 70 Year
  Sex: Male
  Weight: 63.56 kg

DRUGS (9)
  1. LUPRON DEPOT [Suspect]
     Indication: PRODUCT USED FOR UNKNOWN INDICATION
     Dates: start: 20130124
  2. PROLIA [Concomitant]
     Indication: BONE DENSITY ABNORMAL
  3. CALCIUM CARBONATE [Concomitant]
     Indication: BONE DISORDER
  4. CASODEX [Concomitant]
     Indication: PROSTATE CANCER
  5. FLOMAX [Concomitant]
     Indication: DYSURIA
  6. LEVITRA [Concomitant]
     Indication: ERECTILE DYSFUNCTION
  7. MICARDIS [Concomitant]
     Indication: PRODUCT USED FOR UNKNOWN INDICATION
  8. PROSCAR [Concomitant]
     Indication: BENIGN PROSTATIC HYPERPLASIA
  9. TRICOR [Concomitant]

REACTIONS (2)
  - Injection site pain [Not Recovered/Not Resolved]
  - Pain in extremity [Unknown]
